FAERS Safety Report 10896991 (Version 1)
Quarter: 2015Q1

REPORT INFORMATION
  Report Type: Report from Study
  Country: IT (occurrence: IT)
  Receive Date: 20150309
  Receipt Date: 20150309
  Transmission Date: 20150721
  Serious: Yes (Hospitalization, Other)
  Sender: FDA-Public Use
  Company Number: IT-JNJFOC-20140606693

PATIENT
  Sex: Female
  Weight: 54 kg

DRUGS (1)
  1. REMICADE [Suspect]
     Active Substance: INFLIXIMAB
     Indication: COLITIS ULCERATIVE
     Route: 042
     Dates: start: 20110517, end: 20111114

REACTIONS (5)
  - Intestinal anastomosis [Recovered/Resolved]
  - Colitis ulcerative [Unknown]
  - Ileostomy closure [Recovered/Resolved]
  - Colectomy [Unknown]
  - Resection of rectum [Recovered/Resolved]

NARRATIVE: CASE EVENT DATE: 20130926
